FAERS Safety Report 4416749-0 (Version None)
Quarter: 2004Q3

REPORT INFORMATION
  Report Type: 
  Country: None (occurrence: None)
  Receive Date: 20040802
  Receipt Date: 20040722
  Transmission Date: 20050211
  Serious: Yes (Hospitalization)
  Sender: FDA-Public Use
  Company Number: 2004-118809-NL

PATIENT
  Sex: Female

DRUGS (2)
  1. MIRTAZAPINE [Suspect]
     Indication: DEPRESSION
     Dosage: 30 MG/ 15 MG
  2. AMITRIPTYLINE HCL [Suspect]
     Indication: PAIN

REACTIONS (3)
  - DEPRESSION [None]
  - DISEASE RECURRENCE [None]
  - SEROTONIN SYNDROME [None]
